FAERS Safety Report 7271860-4 (Version None)
Quarter: 2011Q1

REPORT INFORMATION
  Report Type: 
  Country: None (occurrence: None)
  Receive Date: 20110126
  Receipt Date: 20110112
  Transmission Date: 20110831
  Serious: Yes (Other)
  Sender: FDA-Public Use
  Company Number: M1003328

PATIENT
  Age: 46 Year
  Sex: Female

DRUGS (3)
  1. ESTREVA (ESTRADIOL) [Concomitant]
  2. SANDRENA 0.5 MG (ESTRADIOL) [Suspect]
     Indication: HORMONE REPLACEMENT THERAPY
     Dosage: 1 IN 1 D
  3. ESTRADOT (ESTRADIOL) [Concomitant]

REACTIONS (1)
  - BLINDNESS UNILATERAL [None]
